FAERS Safety Report 10305598 (Version 2)
Quarter: 2014Q3

REPORT INFORMATION
  Report Type: Spontaneous
  Country: US (occurrence: None)
  Receive Date: 20140711
  Receipt Date: 20140730
  Transmission Date: 20150326
  Serious: Yes (Hospitalization)
  Sender: FDA-Public Use
  Company Number: 2014-US-008378

PATIENT
  Age: 53 Year
  Sex: Female
  Weight: 68 kg

DRUGS (10)
  1. CLOPIDOGREL [Concomitant]
     Active Substance: CLOPIDOGREL BISULFATE
  2. MODAFINIL. [Concomitant]
     Active Substance: MODAFINIL
  3. TUSSIN DM (DEXTROMETHORPHAN HYDROBROMIDE, GUAIFENESIN) [Concomitant]
  4. MIRALAX (MACROGOL) [Concomitant]
  5. XYREM [Suspect]
     Active Substance: SODIUM OXYBATE
     Indication: FATIGUE
     Route: 048
     Dates: start: 201406, end: 201406
  6. BACLOFEN. [Concomitant]
     Active Substance: BACLOFEN
  7. COLACE [Concomitant]
     Active Substance: DOCUSATE SODIUM
  8. XYREM [Suspect]
     Active Substance: SODIUM OXYBATE
     Indication: NARCOLEPSY
     Route: 048
     Dates: start: 201406, end: 201406
  9. NITROFURANTOIN. [Concomitant]
     Active Substance: NITROFURANTOIN
  10. PRAVASTATIN (PRAVASTATIN SODIUM) [Concomitant]

REACTIONS (5)
  - Cerebrovascular accident [None]
  - Excessive eye blinking [None]
  - Sleep paralysis [None]
  - Restlessness [None]
  - Paralysis [None]
